FAERS Safety Report 15344040 (Version 1)
Quarter: 2018Q3

REPORT INFORMATION
  Report Type: Report from Study
  Country: US (occurrence: US)
  Receive Date: 20180903
  Receipt Date: 20180903
  Transmission Date: 20181010
  Serious: Yes (Other)
  Sender: FDA-Public Use
  Company Number: PHEH2018US035376

PATIENT
  Sex: Male

DRUGS (3)
  1. GLEEVEC [Suspect]
     Active Substance: IMATINIB MESYLATE
     Indication: PRODUCT USED FOR UNKNOWN INDICATION
     Dosage: 400 MG, UNK
     Route: 065
  2. GLEEVEC [Suspect]
     Active Substance: IMATINIB MESYLATE
     Dosage: 400 MG, UNK
     Route: 065
  3. GLEEVEC [Suspect]
     Active Substance: IMATINIB MESYLATE
     Dosage: 800 MG, QD
     Route: 065

REACTIONS (7)
  - Vomiting [Unknown]
  - Abdominal discomfort [Unknown]
  - Neoplasm [Unknown]
  - Fluid retention [Unknown]
  - Neoplasm progression [Unknown]
  - Wrong technique in product usage process [Unknown]
  - Drug ineffective [Unknown]
